FAERS Safety Report 23470773 (Version 3)
Quarter: 2024Q2

REPORT INFORMATION
  Report Type: Spontaneous
  Country: US (occurrence: US)
  Receive Date: 20240202
  Receipt Date: 20240405
  Transmission Date: 20240716
  Serious: Yes (Life-Threatening, Hospitalization, Other)
  Sender: FDA-Public Use
  Company Number: US-MLMSERVICE-20240118-4784869-1

PATIENT
  Age: 40 Year
  Sex: Female
  Weight: 54 kg

DRUGS (5)
  1. TRAZODONE [Interacting]
     Active Substance: TRAZODONE HYDROCHLORIDE
     Indication: Insomnia
     Dosage: STARTED IN JUN (FOR 5 MONTHS)
     Route: 048
     Dates: start: 20220613, end: 20221129
  2. BUDESONIDE [Interacting]
     Active Substance: BUDESONIDE
     Indication: Colitis microscopic
     Dosage: FROM AUG TO NOV
     Route: 065
     Dates: start: 20220825, end: 20221103
  3. LISDEXAMFETAMINE [Interacting]
     Active Substance: LISDEXAMFETAMINE
     Indication: Disturbance in attention
     Dosage: STARTED IN JUL (FOR 4 MONTHS)
     Route: 048
     Dates: start: 20220711, end: 20221129
  4. PAROXETINE [Interacting]
     Active Substance: PAROXETINE
     Indication: Anxiety
     Dosage: STARTED IN JUN (FOR 5 MONTH)
     Route: 048
     Dates: start: 20220613, end: 20221129
  5. MOLNUPIRAVIR [Concomitant]
     Active Substance: MOLNUPIRAVIR
     Indication: COVID-19
     Dosage: STARTED AROUND SEP
     Route: 065

REACTIONS (7)
  - Chronic hepatitis [Unknown]
  - Acute hepatic failure [Recovered/Resolved]
  - Hepatitis acute [Unknown]
  - Hepatic encephalopathy [Recovered/Resolved]
  - Splenomegaly [Unknown]
  - Drug-induced liver injury [Recovered/Resolved]
  - Drug interaction [Unknown]

NARRATIVE: CASE EVENT DATE: 20220101
